FAERS Safety Report 5268063-1 (Version None)
Quarter: 2007Q1

REPORT INFORMATION
  Report Type: 
  Country: None (occurrence: None)
  Receive Date: 20070314
  Receipt Date: 20070314
  Transmission Date: 20070707
  Serious: Yes (Other)
  Sender: FDA-Public Use
  Company Number: None

PATIENT
  Age: 51 Year
  Sex: Male
  Weight: 63.5036 kg

DRUGS (2)
  1. IBUPROFEN [Suspect]
     Indication: ARTHRALGIA
     Dosage: 200MG DAILY PO
     Route: 048
     Dates: start: 20060429, end: 20070303
  2. IBUPROFEN [Suspect]
     Indication: INFLAMMATION
     Dosage: 200MG DAILY PO
     Route: 048
     Dates: start: 20060429, end: 20070303

REACTIONS (3)
  - ANAEMIA [None]
  - IMPAIRED DRIVING ABILITY [None]
  - MEDICATION ERROR [None]
